FAERS Safety Report 9288247 (Version 1)
Quarter: 2013Q2

REPORT INFORMATION
  Report Type: Spontaneous
  Country: US (occurrence: US)
  Receive Date: 20130514
  Receipt Date: 20130514
  Transmission Date: 20140414
  Serious: Yes (Other)
  Sender: FDA-Public Use
  Company Number: US-PFIZER INC-2013147103

PATIENT
  Age: 77 Year
  Sex: Female

DRUGS (1)
  1. TIKOSYN [Suspect]
     Dosage: 125 UG, 1-2 X DAILY

REACTIONS (1)
  - Spinal fracture [Unknown]
